FAERS Safety Report 10191111 (Version 2)
Quarter: 2014Q2

REPORT INFORMATION
  Report Type: Spontaneous
  Country: US (occurrence: None)
  Receive Date: 20140521
  Receipt Date: 20140623
  Transmission Date: 20141212
  Serious: Yes (Other)
  Sender: FDA-Public Use
  Company Number: 2014-US-005890

PATIENT
  Age: 62 Year
  Sex: Female

DRUGS (1)
  1. XYREM [Suspect]
     Indication: SLEEP DISORDER
     Route: 048
     Dates: start: 201401, end: 2014

REACTIONS (5)
  - Rheumatoid arthritis [None]
  - Sleep disorder [None]
  - Malaise [None]
  - Fatigue [None]
  - Off label use [None]
